FAERS Safety Report 6638639-5 (Version None)
Quarter: 2010Q1

REPORT INFORMATION
  Report Type: 
  Country: None (occurrence: None)
  Receive Date: 20100317
  Receipt Date: 20100308
  Transmission Date: 20100710
  Serious: Yes (Other)
  Sender: FDA-Public Use
  Company Number: US-AMGEN-QUU397960

PATIENT
  Sex: Female

DRUGS (2)
  1. NPLATE [Suspect]
     Indication: IDIOPATHIC THROMBOCYTOPENIC PURPURA
     Dates: start: 20090817, end: 20091126
  2. CORTICOSTEROIDS [Concomitant]
     Dates: start: 20090722

REACTIONS (1)
  - THERAPEUTIC RESPONSE DECREASED [None]
